FAERS Safety Report 4989845-7 (Version None)
Quarter: 2006Q2

REPORT INFORMATION
  Report Type: 
  Country: None (occurrence: None)
  Receive Date: 20060424
  Receipt Date: 20060410
  Transmission Date: 20061013
  Serious: Yes (Other)
  Sender: FDA-Public Use
  Company Number: 2005BH003585

PATIENT
  Sex: Female

DRUGS (8)
  1. GAMMAGARD S/D [Suspect]
  2. INJECTABLE GLOBULIN  (BAYER) [Suspect]
  3. INJECTABLE GLOBULIN (JOHNSON + JOHNSON CONSUMER COMPANIES) [Suspect]
  4. INJECTABLE GLOBULIN (ORTHO-CLINICAL DIAGNOSTIC, INC) [Suspect]
  5. INJECTABLE GLOBULIN (ABBOTT LABORATORIES, INC.) [Suspect]
  6. INJECTABLE GLOBULIN (AVENTIS PASTEUR, INC.) [Suspect]
  7. INJECTABLE GLOBULIN (BIOPORT CORPORATION) [Suspect]
  8. INJECTABLE GLOBULIN (ELI LILLY AND COMPANY) [Suspect]

REACTIONS (2)
  - DRUG EXPOSURE DURING PREGNANCY [None]
  - METAL POISONING [None]
